FAERS Safety Report 8770612 (Version 1)
Quarter: 2012Q4

REPORT INFORMATION
  Report Type: Report from Study
  Country: JP (occurrence: JP)
  Receive Date: 20120906
  Receipt Date: 20120906
  Transmission Date: 20130627
  Serious: Yes (Death, Hospitalization, Other)
  Sender: FDA-Public Use
  Company Number: JP-CELGENEUS-087-50794-12063305

PATIENT
  Age: 62 None
  Sex: Male
  Weight: 52 kg

DRUGS (3)
  1. VIDAZA [Suspect]
     Indication: MDS
     Dosage: 75 milligram/sq. meter
     Route: 058
     Dates: start: 20120508, end: 20120508
  2. ZYLORIC [Concomitant]
     Indication: DRUG USE FOR UNKNOWN INDICATION
     Route: 065
     Dates: start: 20120503, end: 20120511
  3. TAKEPRON [Concomitant]
     Indication: DRUG USE FOR UNKNOWN INDICATION
     Route: 065
     Dates: start: 20120503, end: 20120511

REACTIONS (3)
  - Acute myeloid leukaemia [Fatal]
  - Blood bilirubin increased [Recovering/Resolving]
  - Colitis [Unknown]
